FAERS Safety Report 4383328-3 (Version None)
Quarter: 2004Q2

REPORT INFORMATION
  Report Type: 
  Country: None (occurrence: None)
  Receive Date: 20040622
  Receipt Date: 20040622
  Transmission Date: 20050107
  Serious: Yes (Hospitalization)
  Sender: FDA-Public Use
  Company Number: None

PATIENT
  Age: 56 Year
  Sex: Male
  Weight: 74.4 kg

DRUGS (11)
  1. LORAZEPAM [Suspect]
     Dosage: 50MG/250, 2MG/HR C, IV PIGGY NACL 0.2%
     Route: 042
     Dates: start: 20040515, end: 20040515
  2. ALBUTEROL AEROSOL METERED-DOSE [Concomitant]
  3. FUROSEMIDE [Concomitant]
  4. PANCURONIUM BROMIDE [Concomitant]
  5. ACETYLCYSTEINE [Concomitant]
  6. HALOPERIDOL LACTATE [Concomitant]
  7. MORPHINE SULFATE [Concomitant]
  8. ACETAMINOPHEN [Concomitant]
  9. THIAMINE HCL [Concomitant]
  10. FENTANYL [Concomitant]
  11. CEFAZOLIN NA [Concomitant]

REACTIONS (2)
  - AGITATION [None]
  - PHARMACEUTICAL PRODUCT COMPLAINT [None]
